FAERS Safety Report 10579721 (Version 1)
Quarter: 2014Q4

REPORT INFORMATION
  Report Type: Spontaneous
  Country: US (occurrence: US)
  Receive Date: 20141112
  Receipt Date: 20141112
  Transmission Date: 20150529
  Serious: No
  Sender: FDA-Public Use
  Company Number: US-MALLINCKRODT-T201305405

PATIENT
  Age: 29 Year
  Sex: Male

DRUGS (6)
  1. OFIRMEV [Suspect]
     Active Substance: ACETAMINOPHEN
     Indication: PAIN
     Route: 042
     Dates: start: 20131203
  2. DILAUDID [Concomitant]
     Active Substance: HYDROMORPHONE HYDROCHLORIDE
     Dosage: ADMINISTERED POSTOPERATIVELY
     Dates: start: 20131203
  3. DEMEROL [Concomitant]
     Active Substance: MEPERIDINE HYDROCHLORIDE
     Dosage: ADMINISTERED POSTOPERATIVELY
     Dates: start: 20131203
  4. ANTIBIOTICS [Concomitant]
     Active Substance: UNSPECIFIED INGREDIENT
     Dosage: ADMINISTERED POSTOPERATIVELY
     Route: 042
     Dates: start: 20131203
  5. FENTANYL. [Concomitant]
     Active Substance: FENTANYL
     Dosage: ADMINISTERED POSTOPERATIVELY
     Dates: start: 20131203
  6. MORPHINE [Concomitant]
     Active Substance: MORPHINE
     Dosage: ADMINISTERED POSTOPERATIVELY
     Dates: start: 20131203

REACTIONS (3)
  - Infusion site extravasation [Unknown]
  - Phlebitis [Unknown]
  - Oedema peripheral [Unknown]

NARRATIVE: CASE EVENT DATE: 20131203
